FAERS Safety Report 24228665 (Version 1)
Quarter: 2024Q3

REPORT INFORMATION
  Report Type: Spontaneous
  Country: US (occurrence: None)
  Receive Date: 20240819
  Receipt Date: 20240819
  Transmission Date: 20241016
  Serious: Yes (Other)
  Sender: Public
  Company Number: None

PATIENT
  Age: 48 Year
  Sex: Male
  Weight: 78.75 kg

DRUGS (3)
  1. KETAMINE [Suspect]
     Active Substance: KETAMINE
     Indication: Depression
     Dosage: OTHER QUANTITY : 10 SUPPOSITORY(IES);?OTHER FREQUENCY : EVERY 3 DAYS;?
     Route: 054
     Dates: start: 20231218, end: 20240818
  2. LEXAPRO [Concomitant]
     Active Substance: ESCITALOPRAM OXALATE
  3. DILTIAZEM [Concomitant]
     Active Substance: DILTIAZEM

REACTIONS (3)
  - Vomiting [None]
  - Hypersomnia [None]
  - Feeling abnormal [None]

NARRATIVE: CASE EVENT DATE: 20240817
